FAERS Safety Report 6674220-X (Version None)
Quarter: 2010Q2

REPORT INFORMATION
  Report Type: 
  Country: None (occurrence: None)
  Receive Date: 20100409
  Receipt Date: 20100331
  Transmission Date: 20101027
  Serious: Yes (Hospitalization, Other)
  Sender: FDA-Public Use
  Company Number: JP-NAPPMUNDI-GBR-2010-0006364

PATIENT
  Age: 8 Month
  Sex: Male

DRUGS (2)
  1. THEOPHYLLINE [Suspect]
     Indication: BRONCHITIS
     Dosage: 40 MG, DAILY
     Route: 048
  2. AMINOPHYLLINE [Suspect]
     Indication: COUGH
     Dosage: 50 MG, UNK
     Route: 054

REACTIONS (1)
  - STATUS EPILEPTICUS [None]
